FAERS Safety Report 7552375 (Version 3)
Quarter: 2013Q3

REPORT INFORMATION
  Report Type: Spontaneous
  Country: FR (occurrence: FR)
  Receive Date: 20100824
  Receipt Date: 20130719
  Transmission Date: 20140515
  Serious: Yes (Other)
  Sender: FDA-Public Use
  Company Number: FR-MSD-1008FRA00073

PATIENT
  Age: 52 Year
  Sex: Female

DRUGS (3)
  1. JANUVIA [Suspect]
     Indication: TYPE 2 DIABETES MELLITUS
     Dosage: 1 DF, QD
     Route: 048
     Dates: start: 20091214, end: 20100611
  2. STAGID [Concomitant]
     Route: 048
  3. ESTREVA [Concomitant]

REACTIONS (3)
  - Lipase increased [Recovered/Resolved]
  - Pancreatitis [Recovered/Resolved]
  - Abdominal pain [Recovered/Resolved]
